FAERS Safety Report 7291997-3 (Version None)
Quarter: 2011Q1

REPORT INFORMATION
  Report Type: 
  Country: None (occurrence: None)
  Receive Date: 20110215
  Receipt Date: 20110207
  Transmission Date: 20110831
  Serious: Yes (Death)
  Sender: FDA-Public Use
  Company Number: US-SHIRE-ALL1-2010-03946

PATIENT

DRUGS (12)
  1. SODIUM BICARBONATE [Concomitant]
     Indication: RENAL FAILURE CHRONIC
     Dosage: 650 MG, 2X/DAY:BID
     Route: 065
     Dates: end: 20100522
  2. CLONAZEPAM [Concomitant]
     Indication: RENAL FAILURE CHRONIC
     Dosage: 0.5 MG, 1X/DAY:QD
     Route: 050
     Dates: end: 20100522
  3. FOSRENOL [Suspect]
     Indication: HYPERPHOSPHATAEMIA
     Dosage: 1000 MG, (WITH MEALS) OTHER
     Route: 048
     Dates: end: 20100522
  4. CALCIUM [Concomitant]
     Indication: RENAL FAILURE CHRONIC
     Dosage: 600 MG, 1X/DAY:QD
     Route: 065
     Dates: end: 20100522
  5. KEPPRA [Concomitant]
     Indication: RENAL FAILURE CHRONIC
     Dosage: 500 MG, OTHER
     Route: 065
     Dates: end: 20100522
  6. FOSRENOL [Suspect]
     Indication: RENAL FAILURE CHRONIC
  7. NEOMYCIN [Concomitant]
     Indication: PRODUCT USED FOR UNKNOWN INDICATION
     Dosage: UNK, UNKNOWN
     Route: 065
  8. LANTUS [Concomitant]
     Indication: RENAL FAILURE CHRONIC
     Dosage: 20 IU, UNKNOWN
     Route: 065
     Dates: end: 20100522
  9. ZOLOFT [Concomitant]
     Indication: RENAL FAILURE CHRONIC
     Dosage: 50 MG, 1X/DAY:QD
     Route: 065
     Dates: end: 20100522
  10. LACTULOSE [Concomitant]
     Indication: RENAL FAILURE CHRONIC
     Dosage: 45 ML, 4X/DAY:QID
     Route: 065
     Dates: end: 20100522
  11. LORTAB [Concomitant]
     Indication: PRODUCT USED FOR UNKNOWN INDICATION
     Dosage: UNK, UNKNOWN
     Route: 065
  12. MIRAPEX [Concomitant]
     Indication: PRODUCT USED FOR UNKNOWN INDICATION
     Dosage: 0.25 MG, 1X/DAY:QD
     Route: 065

REACTIONS (3)
  - RENAL FAILURE CHRONIC [None]
  - ACUTE MYOCARDIAL INFARCTION [None]
  - HEPATIC ENCEPHALOPATHY [None]
